FAERS Safety Report 22259079 (Version 3)
Quarter: 2023Q2

REPORT INFORMATION
  Report Type: Spontaneous
  Country: US (occurrence: US)
  Receive Date: 20230427
  Receipt Date: 20230608
  Transmission Date: 20230722
  Serious: No
  Sender: FDA-Public Use
  Company Number: US-PFIZER INC-PV202300070629

PATIENT
  Age: 11 Year
  Sex: Female
  Weight: 30.2 kg

DRUGS (2)
  1. GENOTROPIN [Suspect]
     Active Substance: SOMATROPIN
     Dosage: 1.2 MG (6 DAYS A WEEK)
  2. GENOTROPIN [Suspect]
     Active Substance: SOMATROPIN
     Dosage: 1.2 MG, 1X/DAY
     Route: 058
     Dates: start: 20230215

REACTIONS (3)
  - Device leakage [Unknown]
  - Device mechanical issue [Unknown]
  - Drug dose omission by device [Unknown]
